FAERS Safety Report 9196537 (Version 1)
Quarter: 2013Q1

REPORT INFORMATION
  Report Type: Spontaneous
  Country: US (occurrence: None)
  Receive Date: 20120709
  Receipt Date: 20120709
  Transmission Date: 20140127
  Serious: Yes (Other)
  Sender: FDA-Public Use
  Company Number: 2012HGS-003480

PATIENT
  Sex: Female

DRUGS (19)
  1. BENLYSTA [Suspect]
     Indication: SYSTEMIC LUPUS ERYTHEMATOSUS
     Dosage: 10 MG/KG, 1 IN 14 D, INTRAVENOUS DRIP
     Route: 041
     Dates: start: 20120206, end: 20120315
  2. HYDROCODONE (HYDROCODONE) (HYDROCODONE) [Concomitant]
  3. VALPROATE (VALPROATE SODIUM) (VALPROATE SODIUM) [Concomitant]
  4. TRAZODONE (TRAZODONE) (TRAZODONE) [Concomitant]
  5. PREDNISONE (PREDNISONE) (PREDNISONE) [Concomitant]
  6. OSCAL (CALCIUM CARBONATE) (CALCIUM CARBONATE) [Concomitant]
  7. MULTIVITAMIN (VIGRAN) (ERGOCALCIFEROL, ASCORBIC ACID, PYRIDOXINEHYDROCHLORIDE, THIAMINE HYDROCHLORIDE, RETINOL, RIBOFLAVIN, NICOTINAMIDE, CALCIUM PANTOTHENATE) [Concomitant]
  8. K-DUR (POTASSIUM CHLORIDE) (POTASSIUM CHLORIDE) [Concomitant]
  9. MIRALAX (MACROGOL 3350) (MACROGOL 3350) [Concomitant]
  10. CYMBALTA (DULOXETINE HYDROCHLORIDE) (DULOXETINE HYDROCHLORIDE) [Concomitant]
  11. NABUMETONE (NABUMETONE) (NABUMETONE)) [Concomitant]
  12. PLAQUENIL (HYDROXYCHLOROQUINE PHOSPHATE) (HYDROXYCHLOROQUINE PHOSPHATE) [Concomitant]
  13. DEXILANT (DEXLANSOPRAZOLE) (DEXLANSOPRAZOLE) [Concomitant]
  14. TRICOR (FENOFIBRATE) (FENOFIBRATE) [Concomitant]
  15. LISINOPRIL (LISINOPRIL) (LISINOPRIL) [Concomitant]
  16. METFORMIN (METFORMIN) (METFORMIN) [Concomitant]
  17. METHOTREXATE (METHOTREXATE) (METHOTREXATE) [Concomitant]
  18. FOLATE (FOLIC ACID) (FOLIC ACID) [Concomitant]
  19. DHA (DOCOSAHEXAENOIC ACID) (DOCOSAHEXAENOIC ACID) [Concomitant]

REACTIONS (4)
  - Hypersensitivity [None]
  - Urticaria [None]
  - Dyspnoea [None]
  - Laryngeal oedema [None]
